FAERS Safety Report 10009609 (Version 1)
Quarter: 2014Q1

REPORT INFORMATION
  Report Type: Spontaneous
  Country: US (occurrence: US)
  Receive Date: 20140312
  Receipt Date: 20140312
  Transmission Date: 20141002
  Serious: No
  Sender: FDA-Public Use
  Company Number: US-INCYTE CORPORATION-2012IN002147

PATIENT
  Age: 74 Year
  Sex: Male

DRUGS (11)
  1. JAKAFI [Suspect]
     Indication: POLYCYTHAEMIA VERA
     Dosage: 15 MG, BID
     Route: 048
     Dates: start: 2012
  2. ADVAIR [Concomitant]
  3. CLONAZEPAM [Concomitant]
  4. LEVEMIR [Concomitant]
  5. LEVOTHYROXINE [Concomitant]
  6. METOPROLOL [Concomitant]
  7. PLAVIX [Concomitant]
  8. RANITIDINE [Concomitant]
  9. SIMVASTATIN [Concomitant]
  10. SPIRIVA [Concomitant]
  11. TAMSULOSIN [Concomitant]

REACTIONS (3)
  - Tremor [Not Recovered/Not Resolved]
  - Abdominal pain [Not Recovered/Not Resolved]
  - Blood count abnormal [Not Recovered/Not Resolved]
